FAERS Safety Report 7360762-0 (Version None)
Quarter: 2011Q1

REPORT INFORMATION
  Report Type: 
  Country: None (occurrence: None)
  Receive Date: 20110318
  Receipt Date: 20110308
  Transmission Date: 20110831
  Serious: Yes (Other)
  Sender: FDA-Public Use
  Company Number: US-PERRIGO-11US001944

PATIENT
  Age: 42 Year
  Sex: Female
  Weight: 52.608 kg

DRUGS (1)
  1. TERCONAZOLE [Suspect]
     Indication: VULVOVAGINAL MYCOTIC INFECTION
     Dosage: 80 MG, SINGLE
     Route: 067
     Dates: start: 20110307, end: 20110307

REACTIONS (11)
  - HYPERVENTILATION [None]
  - DYSPNOEA [None]
  - ARTHRALGIA [None]
  - CHILLS [None]
  - HYPOTENSION [None]
  - ANTICHOLINERGIC SYNDROME [None]
  - PAIN [None]
  - PYREXIA [None]
  - HYPERHIDROSIS [None]
  - MIOSIS [None]
  - INFLUENZA LIKE ILLNESS [None]
